FAERS Safety Report 4507350-9 (Version None)
Quarter: 2004Q4

REPORT INFORMATION
  Report Type: 
  Country: None (occurrence: None)
  Receive Date: 20041118
  Receipt Date: 20041104
  Transmission Date: 20050328
  Serious: Yes (Hospitalization)
  Sender: FDA-Public Use
  Company Number: OPD-2004-005

PATIENT
  Age: 14 Month
  Sex: Male
  Weight: 12 kg

DRUGS (1)
  1. ORAPRED [Suspect]
     Indication: ASTHMA
     Dosage: ML, TWICE, PO
     Route: 048
     Dates: start: 20040504, end: 20041102

REACTIONS (2)
  - DYSPNOEA [None]
  - URTICARIA [None]
